FAERS Safety Report 14477168 (Version 2)
Quarter: 2018Q3

REPORT INFORMATION
  Report Type: Report from Study
  Country: US (occurrence: US)
  Receive Date: 20180201
  Receipt Date: 20180723
  Transmission Date: 20181010
  Serious: No
  Sender: FDA-Public Use
  Company Number: US-EXELIXIS-CABO-17010553

PATIENT
  Sex: Male
  Weight: 60.77 kg

DRUGS (18)
  1. AFINITOR [Suspect]
     Active Substance: EVEROLIMUS
  2. OXYCODONE HYDROCHLORIDE. [Concomitant]
     Active Substance: OXYCODONE HYDROCHLORIDE
  3. VITAMIN D3 [Concomitant]
     Active Substance: CHOLECALCIFEROL
  4. NORVIR [Concomitant]
     Active Substance: RITONAVIR
  5. OXYCODONE AND ACETAMINOPHEN [Concomitant]
     Active Substance: ACETAMINOPHEN\OXYCODONE HYDROCHLORIDE
  6. OXYCONTIN [Concomitant]
     Active Substance: OXYCODONE HYDROCHLORIDE
  7. DESCOVY [Concomitant]
     Active Substance: EMTRICITABINE\TENOFOVIR ALAFENAMIDE FUMARATE
  8. GLUCERNA [Concomitant]
     Active Substance: AMINO ACIDS\DEXTROSE\ELECTROLYTES NOS\SOYBEAN OIL\VITAMINS
  9. DRONABINOL. [Concomitant]
     Active Substance: DRONABINOL
  10. ONDANSETRON [Concomitant]
     Active Substance: ONDANSETRON
  11. DULOXETINE HCL [Concomitant]
     Active Substance: DULOXETINE HYDROCHLORIDE
  12. GABAPENTIN. [Concomitant]
     Active Substance: GABAPENTIN
  13. AMLODIPINE BESYLATE. [Concomitant]
     Active Substance: AMLODIPINE BESYLATE
  14. CABOMETYX [Suspect]
     Active Substance: CABOZANTINIB S-MALATE
     Indication: RENAL CANCER
     Dosage: 20 MG, QD
     Route: 048
     Dates: start: 20170608
  15. REYATAZ [Concomitant]
     Active Substance: ATAZANAVIR SULFATE
  16. TRUVADA [Concomitant]
     Active Substance: EMTRICITABINE\TENOFOVIR DISOPROXIL FUMARATE
  17. LENVIMA [Suspect]
     Active Substance: LENVATINIB
  18. SILVER SULFADIAZINE. [Concomitant]
     Active Substance: SILVER SULFADIAZINE

REACTIONS (3)
  - Neuropathy peripheral [Unknown]
  - Skin discolouration [Unknown]
  - Adverse drug reaction [Recovering/Resolving]
